FAERS Safety Report 7469101-8 (Version None)
Quarter: 2011Q2

REPORT INFORMATION
  Report Type: 
  Country: None (occurrence: None)
  Receive Date: 20110510
  Receipt Date: 20110427
  Transmission Date: 20111010
  Serious: No
  Sender: FDA-Public Use
  Company Number: DE-ELI_LILLY_AND_COMPANY-DE201102005822

PATIENT
  Age: 48 Year
  Sex: Male
  Weight: 65 kg

DRUGS (3)
  1. CYMBALTA [Suspect]
     Dosage: 30 MG, UNK
     Route: 048
  2. CYMBALTA [Suspect]
     Dosage: 30 MG, UNK
     Route: 048
  3. CYMBALTA [Suspect]
     Dosage: 60 MG, UNK
     Route: 048

REACTIONS (1)
  - LIVER FUNCTION TEST ABNORMAL [None]
